FAERS Safety Report 5995677-3 (Version None)
Quarter: 2008Q4

REPORT INFORMATION
  Report Type: 
  Country: None (occurrence: None)
  Receive Date: 20081212
  Receipt Date: 20081204
  Transmission Date: 20090506
  Serious: Yes (Other)
  Sender: FDA-Public Use
  Company Number: US-GENENTECH-267967

PATIENT
  Sex: Female
  Weight: 52.154 kg

DRUGS (2)
  1. RITUXAN [Suspect]
     Indication: MYASTHENIA GRAVIS
     Dosage: UNK G, Q2M
     Route: 042
     Dates: start: 20060101
  2. CYCLOPHOSPHAMIDE [Concomitant]
     Indication: DRUG USE FOR UNKNOWN INDICATION

REACTIONS (3)
  - DRUG RESISTANCE [None]
  - MYASTHENIA GRAVIS [None]
  - RESPIRATORY FAILURE [None]
